FAERS Safety Report 7964175-X (Version None)
Quarter: 2011Q4

REPORT INFORMATION
  Report Type: 
  Country: None (occurrence: None)
  Receive Date: 20111208
  Receipt Date: 20111205
  Transmission Date: 20120403
  Serious: Yes (Death, Other)
  Sender: FDA-Public Use
  Company Number: US-BRISTOL-MYERS SQUIBB COMPANY-16270779

PATIENT
  Age: 93 Year
  Sex: Female

DRUGS (1)
  1. COUMADIN [Suspect]

REACTIONS (2)
  - CEREBRAL HAEMORRHAGE [None]
  - FALL [None]
